FAERS Safety Report 13646949 (Version 1)
Quarter: 2017Q2

REPORT INFORMATION
  Report Type: Report from Study
  Country: BR (occurrence: BR)
  Receive Date: 20170613
  Receipt Date: 20170613
  Transmission Date: 20170830
  Serious: Yes (Other)
  Sender: FDA-Public Use
  Company Number: ALCN2017BR003813

PATIENT
  Sex: Female

DRUGS (3)
  1. TRAVATAN Z [Suspect]
     Active Substance: TRAVOPROST
     Indication: GLAUCOMA
     Dosage: 1 GTT, QD
     Route: 047
  2. TRAVATAN Z [Suspect]
     Active Substance: TRAVOPROST
     Indication: PREOPERATIVE CARE
  3. TRAVATAN Z [Suspect]
     Active Substance: TRAVOPROST
     Indication: POSTOPERATIVE CARE

REACTIONS (5)
  - Eye irritation [Unknown]
  - Eye pain [Unknown]
  - Dementia Alzheimer^s type [Unknown]
  - Blindness [Unknown]
  - Ocular hyperaemia [Unknown]
